FAERS Safety Report 5554813-3 (Version None)
Quarter: 2007Q4

REPORT INFORMATION
  Report Type: 
  Country: None (occurrence: None)
  Receive Date: 20071213
  Receipt Date: 20071204
  Transmission Date: 20080405
  Serious: Yes (Hospitalization)
  Sender: FDA-Public Use
  Company Number: GB-GENENTECH-251636

PATIENT
  Sex: Female

DRUGS (1)
  1. XOLAIR [Suspect]
     Indication: ASTHMA
     Dates: start: 20071108

REACTIONS (5)
  - FATIGUE [None]
  - MALAISE [None]
  - PARAESTHESIA [None]
  - PRURITUS [None]
  - PYREXIA [None]
